FAERS Safety Report 8352376-0 (Version None)
Quarter: 2012Q2

REPORT INFORMATION
  Report Type: 
  Country: None (occurrence: None)
  Receive Date: 20120511
  Receipt Date: 20120503
  Transmission Date: 20120825
  Serious: Yes (Hospitalization, Other)
  Sender: FDA-Public Use
  Company Number: US-BAYER-2012-044659

PATIENT
  Age: 38 Year
  Sex: Female
  Weight: 79.365 kg

DRUGS (4)
  1. YAZ [Suspect]
     Indication: PREMENSTRUAL SYNDROME
     Dosage: UNK
     Dates: start: 20091103, end: 20100208
  2. YAZ [Suspect]
  3. IBUPROFEN [Concomitant]
     Dosage: APPROXIMATELY 6 TABLETS DAILY
  4. LEXAPRO [Concomitant]
     Dosage: 20 MG, DAILY

REACTIONS (6)
  - HYPERTENSION [None]
  - SLEEP APNOEA SYNDROME [None]
  - DEPRESSION [None]
  - PAIN IN EXTREMITY [None]
  - DEEP VEIN THROMBOSIS [None]
  - ANXIETY [None]
